FAERS Safety Report 7403515-7 (Version None)
Quarter: 2011Q1

REPORT INFORMATION
  Report Type: 
  Country: None (occurrence: None)
  Receive Date: 20110331
  Receipt Date: 20110316
  Transmission Date: 20110831
  Serious: Yes (Other)
  Sender: FDA-Public Use
  Company Number: AUR-APL-2011-01011

PATIENT
  Sex: Female
  Weight: 60 kg

DRUGS (8)
  1. DICLOFENAC [Concomitant]
  2. AMITRIPTYLINE HCL [Concomitant]
  3. LORATADINE [Concomitant]
  4. ACETAMINOPHEN AND CODEINE PHOSPHATE [Concomitant]
  5. PHOSPHATE [Concomitant]
  6. GABAPENTIN [Suspect]
     Indication: FACIAL PAIN
     Dosage: 300MG-TID-ORAL
     Route: 048
     Dates: start: 20110107, end: 20110201
  7. GABAPENTIN [Suspect]
     Indication: HEADACHE
     Dosage: 300MG-TID-ORAL
     Route: 048
     Dates: start: 20110107, end: 20110201
  8. SUMATRIPTAN [Concomitant]

REACTIONS (2)
  - SLEEP TALKING [None]
  - SOMNAMBULISM [None]
